FAERS Safety Report 9435121 (Version 1)
Quarter: 2013Q3

REPORT INFORMATION
  Report Type: Spontaneous
  Country: US (occurrence: US)
  Receive Date: 20130801
  Receipt Date: 20130801
  Transmission Date: 20140515
  Serious: Yes (Other)
  Sender: FDA-Public Use
  Company Number: US-BAYER-2013-090412

PATIENT
  Age: 35 Year
  Sex: Female

DRUGS (1)
  1. MIRENA [Suspect]
     Indication: MENORRHAGIA
     Dosage: 20 MCG/24HR, CONT
     Route: 015
     Dates: start: 20071119, end: 20130718

REACTIONS (9)
  - Smear cervix abnormal [None]
  - Infection [None]
  - Device dislocation [None]
  - Device difficult to use [None]
  - Abdominal pain [None]
  - Headache [None]
  - Abdominal pain [None]
  - Pelvic infection [None]
  - Vaginal haemorrhage [Recovered/Resolved]
